FAERS Safety Report 9604279 (Version 2)
Quarter: 2013Q4

REPORT INFORMATION
  Report Type: Report from Study
  Country: MX (occurrence: MX)
  Receive Date: 20131008
  Receipt Date: 20131008
  Transmission Date: 20140711
  Serious: Yes (Life-Threatening)
  Sender: FDA-Public Use
  Company Number: PHHY2011MX113413

PATIENT
  Age: 71 Year
  Sex: Female

DRUGS (4)
  1. ACLASTA [Suspect]
     Indication: OSTEOPOROSIS
     Dosage: 5 MG/100 ML PER YEAR
     Route: 042
     Dates: start: 201111
  2. NOVOVARTALON [Concomitant]
     Indication: PAIN
     Dosage: 1 DF, DAILY
     Dates: start: 201112
  3. MELOXICAM [Concomitant]
     Indication: MUSCULOSKELETAL PAIN
     Dosage: 1 DF,WHEN SHE HAS PAIN
  4. PROTOS (STRONTIUM RANELATE) [Concomitant]
     Dosage: 1 DF, DAILY

REACTIONS (11)
  - Feeling abnormal [Unknown]
  - Hypophagia [Unknown]
  - Abnormal faeces [Not Recovered/Not Resolved]
  - Spinal deformity [Not Recovered/Not Resolved]
  - Musculoskeletal disorder [Recovered/Resolved]
  - Pain [Not Recovered/Not Resolved]
  - Bone pain [Not Recovered/Not Resolved]
  - Abdominal pain upper [Not Recovered/Not Resolved]
  - Malaise [Not Recovered/Not Resolved]
  - Pain in extremity [Not Recovered/Not Resolved]
  - Chills [Unknown]
